FAERS Safety Report 9398890 (Version 4)
Quarter: 2013Q3

REPORT INFORMATION
  Report Type: Spontaneous
  Country: JP (occurrence: JP)
  Receive Date: 20130712
  Receipt Date: 20130829
  Transmission Date: 20140515
  Serious: Yes (Other)
  Sender: FDA-Public Use
  Company Number: JP-ALLERGAN-1310129US

PATIENT
  Age: 3 Year
  Sex: Female

DRUGS (5)
  1. BOTOX [Suspect]
     Indication: TORTICOLLIS
     Dosage: UNK UNK, SINGLE
     Route: 030
     Dates: start: 20120626, end: 20120626
  2. BOTOX [Suspect]
     Dosage: 100 UNITS, UNK
     Route: 030
     Dates: start: 20130423, end: 20130423
  3. DEPAKENE [Concomitant]
     Dosage: 3 ML, BID
     Route: 048
  4. DIAZEPAM [Concomitant]
     Dosage: 0.5 MG, QD
     Route: 048
  5. GABAPEN [Concomitant]
     Dosage: 4 ML, TID
     Route: 048

REACTIONS (8)
  - Loss of consciousness [Unknown]
  - Convulsion [Recovered/Resolved]
  - Convulsion [Recovered/Resolved]
  - Disorientation [Unknown]
  - Vomiting [Unknown]
  - Pyrexia [Unknown]
  - Somnolence [Unknown]
  - Off label use [Unknown]
